FAERS Safety Report 23861778 (Version 1)
Quarter: 2024Q2

REPORT INFORMATION
  Report Type: Spontaneous
  Country: GB (occurrence: GB)
  Receive Date: 20240516
  Receipt Date: 20240516
  Transmission Date: 20240715
  Serious: Yes (Hospitalization, Other)
  Sender: FDA-Public Use
  Company Number: GB-AMGEN-GBRSP2024078684

PATIENT
  Age: 73 Year
  Sex: Male

DRUGS (3)
  1. VECTIBIX [Suspect]
     Active Substance: PANITUMUMAB
     Indication: Rectal adenocarcinoma
     Dosage: UNK
     Route: 065
     Dates: start: 202211
  2. FLUOROURACIL\LEUCOVORIN CALCIUM\OXALIPLATIN [Concomitant]
     Active Substance: FLUOROURACIL\LEUCOVORIN CALCIUM\OXALIPLATIN
     Indication: Rectal adenocarcinoma
     Dosage: UNK
     Route: 065
  3. Capox [Concomitant]
     Indication: Rectal adenocarcinoma
     Dosage: UNK
     Route: 065

REACTIONS (6)
  - Heart failure with reduced ejection fraction [Unknown]
  - Mitral valve incompetence [Unknown]
  - Myocardial fibrosis [Unknown]
  - Cardiac failure [Unknown]
  - Coronary artery disease [Unknown]
  - Ventricular extrasystoles [Unknown]
